FAERS Safety Report 14993529 (Version 2)
Quarter: 2018Q2

REPORT INFORMATION
  Report Type: Spontaneous
  Country: DK (occurrence: DK)
  Receive Date: 20180611
  Receipt Date: 20180620
  Transmission Date: 20180711
  Serious: Yes (Hospitalization, Other)
  Sender: FDA-Public Use
  Company Number: DK-AUROBINDO-AUR-APL-2018-029952

PATIENT
  Age: 79 Year
  Sex: Female

DRUGS (14)
  1. METOPROLOL. [Concomitant]
     Active Substance: METOPROLOL
     Indication: HYPERTENSION
     Dosage: 50 MILLIGRAM, 2 DAY (STYRKE: 50 MG)
     Route: 048
     Dates: start: 20150216
  2. AMOXICILLIN W/CLAVULANIC ACID [Concomitant]
     Active Substance: AMOXICILLIN\CLAVULANIC ACID
     Indication: INFECTION
     Dosage: 3 DOSAGE FORM, ONCE A DAY (STYRKE: 500 MG + 125 MG)
     Route: 065
     Dates: start: 20170501, end: 20171016
  3. FUROSEMIDE. [Concomitant]
     Active Substance: FUROSEMIDE
     Indication: HYPERTENSION
     Dosage: 60 MILLIGRAM, TWO TIMES A DAY (DOSIS: 2 KAPSLER MORGEN OG MIDDAG. STYRKE: 30 MG)
     Route: 048
     Dates: start: 20140806
  4. ALENDRONIC ACID AUROBINDO TABLETS [Suspect]
     Active Substance: ALENDRONIC ACID
     Indication: OSTEOPOROSIS
     Dosage: 70 MILLIGRAM, 1 WEEK (STYRKE: 70 MG)
     Route: 048
     Dates: start: 201402, end: 20160927
  5. VITAMIN B12 [Concomitant]
     Active Substance: CYANOCOBALAMIN
     Indication: VITAMIN SUPPLEMENTATION
     Dosage: DOSIS: 1 MG/ML. PLANLAGT 90 DAGE MELLEM HVER ADMINISTRATION. STYRKE: 1 MG/ML
     Route: 065
     Dates: start: 20140623
  6. ATORVASTATIN [Concomitant]
     Active Substance: ATORVASTATIN
     Indication: HYPERCHOLESTEROLAEMIA
     Dosage: 40 MILLIGRAM, ONCE A DAY (DOSIS: 1 TABLET F?R SENGETID. STYRKE: 40 MG)
     Route: 048
     Dates: start: 20151102
  7. FOLIC ACID. [Concomitant]
     Active Substance: FOLIC ACID
     Indication: VITAMIN SUPPLEMENTATION
     Dosage: 1 MILLIGRAM, ONCE A DAY (DOSIS: 1 TABLET MORGEN. STYRKE: 1 MG)
     Route: 048
     Dates: start: 20170213
  8. PANTOPRAZOLE [Concomitant]
     Active Substance: PANTOPRAZOLE
     Indication: GASTRIC ULCER
     Dosage: 20 MILLIGRAM (DOSIS: 1 TABLET F?R SENGETID. STYRKE: 20 MG)
     Route: 048
     Dates: start: 20151102
  9. CLOPIDOGREL [Concomitant]
     Active Substance: CLOPIDOGREL BISULFATE
     Indication: THROMBOSIS PROPHYLAXIS
     Dosage: 75 MILLIGRAM (STYRKE: 75 MG)
     Route: 048
     Dates: start: 20170502
  10. NOVOMIX [Concomitant]
     Active Substance: INSULIN ASPART
     Indication: DIABETES MELLITUS
     Dosage: 2, 1 PER DAY (DOSIS: 26 IE MORGEN OG 12 IE AFTEN. STYRKE: 100 E/ML. (2))
     Route: 058
     Dates: start: 20150622
  11. PREDNISOLONE. [Concomitant]
     Active Substance: PREDNISOLONE
     Indication: ADRENOCORTICAL STEROID THERAPY
     Dosage: 15 MILLIGRAM, ONCE A DAY (STYRKE: 5 MG)
     Route: 048
     Dates: start: 20161108
  12. POTASSIUM CHLORIDE. [Concomitant]
     Active Substance: POTASSIUM CHLORIDE
     Indication: MINERAL SUPPLEMENTATION
     Dosage: 1500 MILLIGRAM, ONCE A DAY (DOSIS: 2 TABLETTER MORGEN. STYRKE: 750 MG)
     Route: 048
     Dates: start: 20161110
  13. ACLASTA [Suspect]
     Active Substance: ZOLEDRONIC ACID
     Indication: OSTEOPOROSIS
     Dosage: 5 MILLIGRAM (DOSIS: GIVET ?N GANG. STYRKE: 5 MG.)
     Route: 042
     Dates: start: 20160908, end: 20160908
  14. ALLOPURINOL. [Concomitant]
     Active Substance: ALLOPURINOL
     Indication: GOUTY ARTHRITIS
     Dosage: 200 MILLIGRAM (STYRKE: 100 MG)
     Route: 048
     Dates: start: 20150616

REACTIONS (4)
  - Jaw operation [Recovered/Resolved]
  - Tooth extraction [Recovered/Resolved]
  - Osteonecrosis of jaw [Recovered/Resolved]
  - Exposed bone in jaw [Recovered/Resolved]

NARRATIVE: CASE EVENT DATE: 2017
